FAERS Safety Report 8210950-6 (Version None)
Quarter: 2012Q1

REPORT INFORMATION
  Report Type: 
  Country: None (occurrence: None)
  Receive Date: 20120315
  Receipt Date: 20120308
  Transmission Date: 20120608
  Serious: Yes (Hospitalization)
  Sender: FDA-Public Use
  Company Number: US-BAYER-2012-023920

PATIENT
  Age: 20 Year
  Sex: Female
  Weight: 90.703 kg

DRUGS (10)
  1. LORATADINE [Concomitant]
  2. METFORMIN HCL [Concomitant]
  3. NEFAZODONE HCL [Concomitant]
     Dosage: UNK
     Dates: start: 20070120, end: 20080316
  4. BENADRYL [Concomitant]
  5. DILAUDID [Concomitant]
     Indication: HEADACHE
  6. YAZ [Suspect]
  7. DARVOCET [Concomitant]
  8. TORADOL [Concomitant]
     Indication: HEADACHE
  9. YASMIN [Suspect]
  10. SINGULAIR [Concomitant]
     Dosage: UNK
     Dates: start: 20071119, end: 20080316

REACTIONS (1)
  - INTRACRANIAL VENOUS SINUS THROMBOSIS [None]
